FAERS Safety Report 16863082 (Version 1)
Quarter: 2019Q3

REPORT INFORMATION
  Report Type: Spontaneous
  Country: US (occurrence: US)
  Receive Date: 20190927
  Receipt Date: 20190927
  Transmission Date: 20191005
  Serious: Yes (Death, Life-Threatening, Other)
  Sender: FDA-Public Use
  Company Number: US-AMGEN-USASP2019158073

PATIENT

DRUGS (3)
  1. CARFILZOMIB [Suspect]
     Active Substance: CARFILZOMIB
     Indication: SMALL CELL LUNG CANCER
     Dosage: 20 MILLIGRAM/SQ. METER D 1, 2, 8, 9, 15, 16 Q28D
     Route: 065
  2. CARFILZOMIB [Suspect]
     Active Substance: CARFILZOMIB
     Dosage: 36 MILLIGRAM/SQ. METER D 1, 2, 8, 9, 15, 16 Q28D
     Route: 065
  3. IRINOTECAN [Suspect]
     Active Substance: IRINOTECAN
     Indication: SMALL CELL LUNG CANCER
     Dosage: 125 MILLIGRAM/SQ. METER D1, 8,15 Q28D
     Route: 065

REACTIONS (13)
  - Myocardial infarction [Fatal]
  - Hypokalaemia [Unknown]
  - Dehydration [Unknown]
  - Small cell lung cancer [Unknown]
  - Sepsis [Fatal]
  - Lung infection [Fatal]
  - Neutrophil count decreased [Unknown]
  - Hypocalcaemia [Unknown]
  - White blood cell count decreased [Unknown]
  - Off label use [Unknown]
  - Lymphocyte count decreased [Unknown]
  - Vomiting [Unknown]
  - Diarrhoea [Unknown]
